FAERS Safety Report 6856473-8 (Version None)
Quarter: 2010Q3

REPORT INFORMATION
  Report Type: 
  Country: None (occurrence: None)
  Receive Date: 20100719
  Receipt Date: 20100708
  Transmission Date: 20110219
  Serious: Yes (Hospitalization)
  Sender: FDA-Public Use
  Company Number: KR-ROCHE-710602

PATIENT
  Sex: Female
  Weight: 74 kg

DRUGS (5)
  1. BEVACIZUMAB [Suspect]
     Indication: NON-SMALL CELL LUNG CANCER
     Dosage: LAST DOSE: 16 JUNE 2010
     Route: 042
     Dates: start: 20100526
  2. CISPLATIN [Suspect]
     Indication: NON-SMALL CELL LUNG CANCER
     Dosage: LAST DOSE: 16 JUNE 2010
     Route: 042
     Dates: start: 20100526
  3. PEMETREXED DISODIUM [Suspect]
     Indication: NON-SMALL CELL LUNG CANCER
     Dosage: LAST DOSE: 16 JUNE 2010
     Route: 042
     Dates: start: 20100526
  4. MANNITOL [Suspect]
     Indication: PRODUCT USED FOR UNKNOWN INDICATION
     Route: 065
     Dates: start: 20100526, end: 20100526
  5. FUROSEMIDE [Concomitant]
     Dates: start: 20100526, end: 20100526

REACTIONS (1)
  - BLOOD CREATININE INCREASED [None]
